FAERS Safety Report 24250453 (Version 4)
Quarter: 2024Q4

REPORT INFORMATION
  Report Type: Spontaneous
  Country: JP (occurrence: JP)
  Receive Date: 20240826
  Receipt Date: 20241128
  Transmission Date: 20250115
  Serious: Yes (Hospitalization)
  Sender: BOEHRINGER INGELHEIM
  Company Number: JP-NBI-2024-BI-036781

PATIENT
  Age: 73 Year
  Sex: Male
  Weight: 70 kg

DRUGS (10)
  1. EMPAGLIFLOZIN\LINAGLIPTIN [Suspect]
     Active Substance: EMPAGLIFLOZIN\LINAGLIPTIN
     Indication: Diabetes mellitus
     Dosage: DOSE PER 1 TIME: 1 TABLET?FREQUENCY OF ADMINISTRATION PER DAY: 1
     Route: 048
     Dates: start: 20220122
  2. EMPAGLIFLOZIN\LINAGLIPTIN [Suspect]
     Active Substance: EMPAGLIFLOZIN\LINAGLIPTIN
     Dosage: DOSE PER 1 TIME: 1 TABLET?FREQUENCY OF ADMINISTRATION PER DAY: 1
     Route: 048
     Dates: start: 20240601, end: 20240629
  3. IMEGLIMIN HYDROCHLORIDE [Suspect]
     Active Substance: IMEGLIMIN HYDROCHLORIDE
     Indication: Diabetes mellitus
     Dosage: DOSE PER 1 TIME: 2 TABLETS?FREQUENCY OF ADMINISTRATION PER DAY: 2
     Route: 048
     Dates: start: 20240413
  4. IMEGLIMIN HYDROCHLORIDE [Suspect]
     Active Substance: IMEGLIMIN HYDROCHLORIDE
     Dosage: DOSE PER 1 TIME: 2 TABLETS?FREQUENCY OF ADMINISTRATION PER DAY: 2
     Route: 048
     Dates: start: 20240616, end: 20240620
  5. IMEGLIMIN HYDROCHLORIDE [Suspect]
     Active Substance: IMEGLIMIN HYDROCHLORIDE
     Dosage: DOSE PER 1 TIME: 2 TABLETS?FREQUENCY OF ADMINISTRATION PER DAY: 2
     Route: 048
     Dates: end: 20240629
  6. METGLUCO [Suspect]
     Active Substance: METFORMIN HYDROCHLORIDE
     Indication: Diabetes mellitus
     Route: 048
     Dates: start: 20161028
  7. METGLUCO [Suspect]
     Active Substance: METFORMIN HYDROCHLORIDE
     Route: 048
     Dates: start: 20240629
  8. ROSUVASTATIN [Concomitant]
     Active Substance: ROSUVASTATIN
     Indication: Lipids abnormal
     Route: 048
     Dates: start: 20180928
  9. PARMODIA XR [Concomitant]
     Indication: Lipids abnormal
     Route: 048
     Dates: start: 20241024
  10. NEORESTAMIN [Concomitant]
     Indication: Product used for unknown indication
     Route: 048

REACTIONS (5)
  - Diabetic ketoacidosis [Recovered/Resolved with Sequelae]
  - Vomiting [Recovering/Resolving]
  - Pyrexia [Unknown]
  - Heat illness [Unknown]
  - Nausea [Recovering/Resolving]

NARRATIVE: CASE EVENT DATE: 20240525
